FAERS Safety Report 6567545-X (Version None)
Quarter: 2010Q1

REPORT INFORMATION
  Report Type: 
  Country: None (occurrence: None)
  Receive Date: 20100202
  Receipt Date: 20100125
  Transmission Date: 20100710
  Serious: Yes (Hospitalization, Other)
  Sender: FDA-Public Use
  Company Number: US-ELI_LILLY_AND_COMPANY-US201001005326

PATIENT
  Sex: Male

DRUGS (6)
  1. HUMALOG [Suspect]
     Indication: DIABETES MELLITUS
     Dosage: UNK, AS NEEDED
     Dates: start: 20020101
  2. HUMALOG [Suspect]
     Dosage: UNK, AS NEEDED
     Dates: start: 20020101
  3. HUMALOG [Suspect]
  4. HUMULIN N [Suspect]
     Indication: DIABETES MELLITUS
     Dosage: 33 U, EACH MORNING
     Dates: start: 20070101, end: 20091001
  5. HUMULIN N [Suspect]
     Dosage: 22 U, EACH EVENING
     Dates: start: 20070101, end: 20091001
  6. LANTUS [Concomitant]

REACTIONS (14)
  - BLOOD CREATININE INCREASED [None]
  - BLOOD GLUCOSE DECREASED [None]
  - DIALYSIS [None]
  - DRUG DISPENSING ERROR [None]
  - EXPIRED DRUG ADMINISTERED [None]
  - HOSPITALISATION [None]
  - HYPERHIDROSIS [None]
  - HYPOGLYCAEMIC UNCONSCIOUSNESS [None]
  - INCORRECT DOSE ADMINISTERED [None]
  - LOCALISED INFECTION [None]
  - MEDICATION ERROR [None]
  - OSTEOMYELITIS [None]
  - PAIN [None]
  - ULCER [None]
